FAERS Safety Report 12079438 (Version 1)
Quarter: 2016Q1

REPORT INFORMATION
  Report Type: Spontaneous
  Country: None (occurrence: None)
  Receive Date: 20160212
  Receipt Date: 20160212
  Transmission Date: 20160526
  Serious: Yes (Other)
  Sender: FDA-Public Use
  Company Number: None

PATIENT
  Age: 76 Year
  Sex: Female
  Weight: 72.58 kg

DRUGS (9)
  1. AYRSALINE [Concomitant]
  2. ALKALOL [Concomitant]
  3. TYLENOL [Concomitant]
     Active Substance: ACETAMINOPHEN
  4. ASPIRIN. [Concomitant]
     Active Substance: ASPIRIN
  5. CLOBESTASOL PROPIONATE [Concomitant]
  6. RESTAS [Concomitant]
  7. TRAMADOL HCL [Suspect]
     Active Substance: TRAMADOL HYDROCHLORIDE
     Indication: PAIN
     Route: 048
     Dates: start: 20160201, end: 20160201
  8. VERAPAMILER [Concomitant]
  9. VITAMIN D3 [Concomitant]
     Active Substance: CHOLECALCIFEROL

REACTIONS (4)
  - Pain [None]
  - Vertigo [None]
  - Confusional state [None]
  - Anxiety [None]

NARRATIVE: CASE EVENT DATE: 20160201
